FAERS Safety Report 25405452 (Version 1)
Quarter: 2025Q2

REPORT INFORMATION
  Report Type: Spontaneous
  Country: GB (occurrence: GB)
  Receive Date: 20250606
  Receipt Date: 20250606
  Transmission Date: 20250717
  Serious: Yes (Death)
  Sender: CELLTRION
  Company Number: GB-CELLTRION INC.-2025GB017358

PATIENT

DRUGS (1)
  1. YUFLYMA [Suspect]
     Active Substance: ADALIMUMAB-AATY
     Indication: Psoriatic arthropathy
     Dosage: YUFLYMA 40MG FOR INJECTION PENS - INJECT ONE PRE-FILLED PEN ONCE EVERY WEEK
     Route: 058
     Dates: start: 202502, end: 202505

REACTIONS (2)
  - Death [Fatal]
  - Intentional product use issue [Unknown]
